FAERS Safety Report 9466432 (Version 1)
Quarter: 2013Q3

REPORT INFORMATION
  Report Type: Spontaneous
  Country: US (occurrence: None)
  Receive Date: 20130816
  Receipt Date: 20130816
  Transmission Date: 20140515
  Serious: Yes (Other)
  Sender: FDA-Public Use
  Company Number: None

PATIENT
  Age: 60 Year
  Sex: Female
  Weight: 71.4 kg

DRUGS (19)
  1. LEVOFLOXACIN [Suspect]
     Indication: CELLULITIS
     Route: 048
     Dates: start: 20130702, end: 20130708
  2. LEVOFLOXACIN [Suspect]
     Indication: ANIMAL BITE
     Route: 048
     Dates: start: 20130702, end: 20130708
  3. LEVOFLOXACIN [Suspect]
     Indication: INCISIONAL DRAINAGE
     Route: 048
     Dates: start: 20130702, end: 20130708
  4. LEVOFLOXACIN [Suspect]
     Indication: ABSCESS
     Route: 048
     Dates: start: 20130702, end: 20130708
  5. LEVOFLOXACIN [Suspect]
     Indication: ANIMAL BITE
     Route: 048
     Dates: start: 20130702, end: 20130708
  6. BACTRIM [Concomitant]
  7. FLONASE [Concomitant]
  8. PROVENTIL [Concomitant]
  9. VITAMIN D-3 [Concomitant]
  10. FISH OIL [Concomitant]
  11. VITAMIN B COMPLEX [Concomitant]
  12. ADDERALL XR [Concomitant]
  13. ALPRAZOLAM [Concomitant]
  14. ZONISAMIDE [Concomitant]
  15. ABILIFY [Concomitant]
  16. TRAMADOL [Concomitant]
  17. RELPAX [Concomitant]
  18. CAMBIA ORAL POWDER PACKET [Concomitant]
  19. ZOLOFT [Concomitant]

REACTIONS (7)
  - Wound secretion [None]
  - Purulence [None]
  - Pain in extremity [None]
  - Local swelling [None]
  - Tendon rupture [None]
  - Tendonitis [None]
  - Bursitis [None]
